FAERS Safety Report 5337990-9 (Version None)
Quarter: 2007Q2

REPORT INFORMATION
  Report Type: 
  Country: None (occurrence: None)
  Receive Date: 20070530
  Receipt Date: 20070523
  Transmission Date: 20071010
  Serious: No
  Sender: FDA-Public Use
  Company Number: US-ELI_LILLY_AND_COMPANY-US200705006702

PATIENT
  Age: 55 Year
  Sex: Female

DRUGS (3)
  1. ZYPREXA [Suspect]
     Dosage: 5 MG, DAILY (1/D)
     Dates: start: 20060701
  2. OTHER ANTIHYPERTENSIVES [Concomitant]
     Indication: BLOOD PRESSURE
  3. ANTI-DIABETICS [Concomitant]
     Indication: METABOLIC DISORDER

REACTIONS (1)
  - EOSINOPHIL COUNT INCREASED [None]
